FAERS Safety Report 4745334-6 (Version None)
Quarter: 2005Q3

REPORT INFORMATION
  Report Type: 
  Country: None (occurrence: None)
  Receive Date: 20050812
  Receipt Date: 20050803
  Transmission Date: 20060218
  Serious: Yes (Hospitalization)
  Sender: FDA-Public Use
  Company Number: 2005-02844

PATIENT
  Age: 53 Year
  Sex: Male
  Weight: 81.6 kg

DRUGS (3)
  1. DICYCLOMINE(WATSON LABORATORIES)(DICYCLOMINE HYDROCHLORIDE)  TABLET, 2 [Suspect]
     Indication: ABDOMINAL PAIN UPPER
     Dosage: 1 TABLET, Q6H 2 TABLETS TOTAL, ORAL
     Route: 048
     Dates: start: 20050713, end: 20050713
  2. CRESTOR [Concomitant]
  3. UNSPECIFIED MED FOR GOUT [Concomitant]

REACTIONS (1)
  - APPENDICITIS PERFORATED [None]
